FAERS Safety Report 8449438 (Version 2)
Quarter: 2012Q4

REPORT INFORMATION
  Report Type: 
  Country: FR (occurrence: FR)
  Receive Date: 20120308
  Receipt Date: 20120910
  Transmission Date: 20130627
  Serious: Yes (Hospitalization)
  Sender: FDA-Public Use
  Company Number: FR-PFIZER INC-2012054653

PATIENT
  Age: 58 Year
  Sex: Male

DRUGS (4)
  1. IRINOTECAN [Suspect]
     Indication: GLIOBLASTOMA
     Dosage: 187.5 mg (125mg/m2), cyclic (day 1 of the first cycle)
     Route: 042
     Dates: start: 20111202, end: 20111202
  2. IRINOTECAN [Suspect]
     Dosage: 187.5 mg (125mg/m2), cyclic (day 1 of the second cycle)
     Dates: start: 20111216, end: 20111216
  3. AVASTIN [Suspect]
     Indication: GLIOBLASTOMA
     Dosage: 850 mg (10 mg/m2), cyclic (day 1 of the first cycle)
     Route: 042
     Dates: start: 20111202, end: 20111202
  4. AVASTIN [Suspect]
     Dosage: 850 mg (10 mg/m2), cyclic (day 1 of the second cycle)
     Dates: start: 20111216, end: 20111216

REACTIONS (5)
  - Colon injury [Recovered/Resolved with Sequelae]
  - Pneumoperitoneum [Recovered/Resolved with Sequelae]
  - Large intestine perforation [None]
  - Ascites [None]
  - Diverticulum intestinal [None]
